FAERS Safety Report 8041318-3 (Version None)
Quarter: 2012Q1

REPORT INFORMATION
  Report Type: 
  Country: None (occurrence: None)
  Receive Date: 20120112
  Receipt Date: 20120104
  Transmission Date: 20120608
  Serious: Yes (Other)
  Sender: FDA-Public Use
  Company Number: US-PFIZER INC-2012005921

PATIENT
  Sex: Female
  Weight: 45.4 kg

DRUGS (1)
  1. VIBRAMYCIN [Suspect]
     Indication: RHEUMATOID ARTHRITIS
     Dosage: 25 MG, 3X/WEEK
     Dates: start: 20120102, end: 20120102

REACTIONS (2)
  - HEADACHE [None]
  - ANAPHYLACTIC REACTION [None]
